FAERS Safety Report 5132429-0 (Version None)
Quarter: 2006Q4

REPORT INFORMATION
  Report Type: 
  Country: None (occurrence: None)
  Receive Date: 20061023
  Receipt Date: 20061012
  Transmission Date: 20070319
  Serious: Yes (Life-Threatening)
  Sender: FDA-Public Use
  Company Number: JP-BAYER-200611119BYL

PATIENT
  Age: 80 Year
  Sex: Female

DRUGS (5)
  1. ADALAT [Suspect]
     Indication: HYPERTENSION
     Dosage: TOTAL DAILY DOSE: 40 MG  UNIT DOSE: 40 MG
     Route: 048
  2. ALLOPURINOL [Suspect]
     Indication: HYPERURICAEMIA
     Route: 048
  3. LASIX [Concomitant]
     Route: 048
  4. RENIVACE [Concomitant]
     Indication: HYPERTENSION
     Route: 048
  5. PURSENNID [Concomitant]
     Route: 048

REACTIONS (5)
  - ERYTHEMA [None]
  - GENERALISED ERYTHEMA [None]
  - MUCOSAL EROSION [None]
  - PYREXIA [None]
  - STEVENS-JOHNSON SYNDROME [None]
